FAERS Safety Report 10594901 (Version 1)
Quarter: 2014Q4

REPORT INFORMATION
  Report Type: Spontaneous
  Country: US (occurrence: None)
  Receive Date: 20141113
  Receipt Date: 20141113
  Transmission Date: 20150529
  Serious: Yes (Death)
  Sender: FDA-Public Use
  Company Number: GTI002669

PATIENT
  Age: 5 Year
  Sex: Female

DRUGS (7)
  1. GAMUNEX-C [Suspect]
     Active Substance: HUMAN IMMUNOGLOBULIN G
     Indication: HYPOGAMMAGLOBULINAEMIA
     Route: 042
     Dates: start: 2007, end: 201301
  2. GAMUNEX-C [Suspect]
     Active Substance: HUMAN IMMUNOGLOBULIN G
     Indication: PNEUMONIA
     Route: 042
     Dates: start: 2007, end: 201301
  3. DIPHENHYDRAMINE [Concomitant]
     Active Substance: DIPHENHYDRAMINE
  4. SIROLIMUS. [Concomitant]
     Active Substance: SIROLIMUS
  5. MYCOPHENOLATE [Concomitant]
     Active Substance: MYCOPHENOLIC ACID
  6. MOFETIL [Concomitant]
     Active Substance: MYCOPHENOLATE MOFETIL
  7. ACETAMINOPHEN. [Concomitant]
     Active Substance: ACETAMINOPHEN

REACTIONS (6)
  - Embolism [None]
  - Myocardial ischaemia [None]
  - Heart transplant [None]
  - Sudden death [None]
  - Unresponsive to stimuli [None]
  - Blood viscosity increased [None]

NARRATIVE: CASE EVENT DATE: 201301
